FAERS Safety Report 5581118-7 (Version None)
Quarter: 2007Q4

REPORT INFORMATION
  Report Type: 
  Country: None (occurrence: None)
  Receive Date: 20071130
  Receipt Date: 20070807
  Transmission Date: 20080405
  Serious: No
  Sender: FDA-Public Use
  Company Number: US200707004037

PATIENT
  Age: 67 Year
  Sex: Female

DRUGS (13)
  1. BYETTA [Suspect]
     Indication: TYPE 2 DIABETES MELLITUS
     Dosage: 5 UG, 2/D, 10 UG, 2/D, SUBCUTANEOUS
     Route: 058
     Dates: start: 20060901, end: 20061001
  2. BYETTA [Suspect]
     Indication: TYPE 2 DIABETES MELLITUS
     Dosage: 5 UG, 2/D, 10 UG, 2/D, SUBCUTANEOUS
     Route: 058
     Dates: start: 20061001
  3. CYMBALTA [Concomitant]
  4. LIPITOR [Concomitant]
  5. METFORMIN HCL [Concomitant]
  6. CELEBREX [Concomitant]
  7. LYRICA [Concomitant]
  8. ACETAMINOPHEN [Concomitant]
  9. LIDOCAINE [Concomitant]
  10. CO-Q10 (UBIDECARENONE) [Concomitant]
  11. ASPIRIN [Concomitant]
  12. OMEGA 3 FISH OIL (FISH OIL) [Concomitant]
  13. COLCHICUM JTL LIQ [Concomitant]

REACTIONS (15)
  - DECREASED APPETITE [None]
  - FATIGUE [None]
  - HERPES ZOSTER [None]
  - INTERVERTEBRAL DISC PROTRUSION [None]
  - JOINT SWELLING [None]
  - LIMB INJURY [None]
  - LUMBAR SPINAL STENOSIS [None]
  - MALAISE [None]
  - NAUSEA [None]
  - OSTEOARTHRITIS [None]
  - ROAD TRAFFIC ACCIDENT [None]
  - SINUS TARSI SYNDROME [None]
  - TENDON DISORDER [None]
  - TENDONITIS [None]
  - TRAUMATIC SHOCK [None]
